FAERS Safety Report 16630615 (Version 3)
Quarter: 2019Q3

REPORT INFORMATION
  Report Type: Spontaneous
  Country: US (occurrence: US)
  Receive Date: 20190725
  Receipt Date: 20190801
  Transmission Date: 20191004
  Serious: Yes (Other)
  Sender: FDA-Public Use
  Company Number: US-PFIZER INC-2019314068

PATIENT
  Age: 65 Year
  Sex: Male

DRUGS (1)
  1. XELJANZ XR [Suspect]
     Active Substance: TOFACITINIB CITRATE
     Dosage: 11 MG, UNK

REACTIONS (13)
  - Tenderness [Not Recovered/Not Resolved]
  - Musculoskeletal stiffness [Unknown]
  - Fall [Unknown]
  - Arthropathy [Unknown]
  - Wound [Recovered/Resolved]
  - Product dose omission [Unknown]
  - Muscle disorder [Unknown]
  - Depressed mood [Unknown]
  - Insomnia [Unknown]
  - Mental disorder [Unknown]
  - Nerve compression [Unknown]
  - Psychiatric symptom [Unknown]
  - Headache [Unknown]
